FAERS Safety Report 8114796-9 (Version None)
Quarter: 2012Q1

REPORT INFORMATION
  Report Type: 
  Country: None (occurrence: None)
  Receive Date: 20120206
  Receipt Date: 20120124
  Transmission Date: 20120608
  Serious: Yes (Hospitalization, Other)
  Sender: FDA-Public Use
  Company Number: US-ELI_LILLY_AND_COMPANY-US201007004580

PATIENT
  Sex: Female

DRUGS (19)
  1. FORTEO [Suspect]
     Dosage: 20 UG, QD
     Route: 058
  2. FORTEO [Suspect]
     Dosage: 20 UG, QD
     Route: 058
  3. NASONEX [Concomitant]
  4. SYMBICORT [Concomitant]
     Dosage: UNK, BID
  5. MUCINEX [Concomitant]
  6. FORTEO [Suspect]
     Dosage: 20 UG, QD
     Route: 058
  7. FORTEO [Suspect]
     Dosage: 20 UG, QD
     Route: 058
  8. FORTEO [Suspect]
     Indication: OSTEOPOROSIS
     Dosage: 20 UG, QD
     Route: 058
     Dates: start: 20100625
  9. THEOPHYLLINE [Concomitant]
     Dosage: 200 MG, UNK
  10. VENTOLIN [Concomitant]
  11. CHLORPHENIRAMINE MALEATE [Concomitant]
  12. FORTEO [Suspect]
     Dosage: 20 UG, QD
     Route: 058
     Dates: start: 20101016
  13. FORTEO [Suspect]
     Dosage: 20 UG, QD
     Route: 058
  14. IBUPROFEN (ADVIL) [Concomitant]
     Dosage: UNK, PRN
  15. FORTEO [Suspect]
     Dosage: 20 UG, QD
     Route: 058
  16. FLUTICASONE PROPIONATE [Concomitant]
     Indication: HYPERSENSITIVITY
  17. FORTEO [Suspect]
     Dosage: 20 UG, QD
     Route: 058
  18. PREDNISONE TAB [Concomitant]
  19. ALBUTEROL [Concomitant]

REACTIONS (11)
  - ARTHRITIS [None]
  - FLUSHING [None]
  - CHRONIC OBSTRUCTIVE PULMONARY DISEASE [None]
  - INJECTION SITE PAIN [None]
  - PAIN [None]
  - MUSCLE SPASMS [None]
  - HAND FRACTURE [None]
  - ARTHRALGIA [None]
  - FALL [None]
  - HEAD INJURY [None]
  - DIZZINESS [None]
